FAERS Safety Report 7785904-4 (Version None)
Quarter: 2011Q3

REPORT INFORMATION
  Report Type: 
  Country: None (occurrence: None)
  Receive Date: 20110929
  Receipt Date: 20110928
  Transmission Date: 20111222
  Serious: Yes (Hospitalization)
  Sender: FDA-Public Use
  Company Number: IE-ROCHE-673812

PATIENT
  Sex: Female

DRUGS (5)
  1. CALCICHEW D3 FORTE [Concomitant]
     Indication: OSTEOPOROSIS
  2. METHOTREXATE [Concomitant]
     Indication: RHEUMATOID ARTHRITIS
  3. LEVOTHYROXINE SODIUM [Concomitant]
     Indication: HYPOTHYROIDISM
  4. ACTEMRA [Suspect]
     Indication: RHEUMATOID ARTHRITIS
     Dosage: FORM:INFUSION
     Route: 042
     Dates: start: 20091014, end: 20091014
  5. FOLIC ACID [Concomitant]
     Indication: RHEUMATOID ARTHRITIS

REACTIONS (1)
  - VASCULITIS [None]
